FAERS Safety Report 5208840-6 (Version None)
Quarter: 2006Q4

REPORT INFORMATION
  Report Type: 
  Country: None (occurrence: None)
  Receive Date: 20061101
  Receipt Date: 20060710
  Transmission Date: 20070319
  Serious: No
  Sender: FDA-Public Use
  Company Number: 2006PV017333

PATIENT
  Age: 44 Year
  Sex: Female
  Weight: 108.8633 kg

DRUGS (6)
  1. SYMLIN [Suspect]
     Indication: DIABETES MELLITUS NON-INSULIN-DEPENDENT
     Dosage: 120 MCG; TID; SC
     Route: 058
     Dates: start: 20060101
  2. SYMLIN [Suspect]
     Dosage: 60 MCG; TID; SC
     Route: 058
     Dates: start: 20060619, end: 20060101
  3. HUMALOG [Concomitant]
  4. APIDRA [Concomitant]
  5. HUMALOG [Concomitant]
  6. LANTUS [Concomitant]

REACTIONS (4)
  - ABDOMINAL DISTENSION [None]
  - BLOOD GLUCOSE INCREASED [None]
  - DRUG INEFFECTIVE [None]
  - NAUSEA [None]
